FAERS Safety Report 7664136-4 (Version None)
Quarter: 2011Q3

REPORT INFORMATION
  Report Type: 
  Country: None (occurrence: None)
  Receive Date: 20110806
  Receipt Date: 20110111
  Transmission Date: 20111222
  Serious: No
  Sender: FDA-Public Use
  Company Number: US-ABBOTT-11P-163-0696496-00

PATIENT
  Sex: Male
  Weight: 62.198 kg

DRUGS (4)
  1. CORTISONE ACETATE [Concomitant]
     Indication: PRODUCT USED FOR UNKNOWN INDICATION
  2. NIASPAN [Suspect]
     Dosage: 500 MG EACH MORNING
     Route: 048
     Dates: start: 20110101
  3. ASPIRIN [Concomitant]
     Indication: PRODUCT USED FOR UNKNOWN INDICATION
     Route: 048
  4. NIASPAN [Suspect]
     Indication: PRODUCT USED FOR UNKNOWN INDICATION
     Dates: start: 20060101

REACTIONS (5)
  - MYALGIA [None]
  - PAIN [None]
  - FEELING HOT [None]
  - FLUSHING [None]
  - HYPERHIDROSIS [None]
